FAERS Safety Report 9686595 (Version 2)
Quarter: 2013Q4

REPORT INFORMATION
  Report Type: Report from Study
  Country: US (occurrence: US)
  Receive Date: 20131113
  Receipt Date: 20131206
  Transmission Date: 20140711
  Serious: Yes (Hospitalization)
  Sender: FDA-Public Use
  Company Number: US-GLAXOSMITHKLINE-A1049305A

PATIENT
  Age: 80 Year
  Sex: Female
  Weight: 62.1 kg

DRUGS (2)
  1. PAZOPANIB [Suspect]
     Indication: CHOLANGIOCARCINOMA
     Dosage: 800MG PER DAY
     Route: 048
     Dates: start: 20130911
  2. TRAMETINIB [Suspect]
     Indication: CHOLANGIOCARCINOMA
     Dosage: 2MG PER DAY
     Route: 048
     Dates: start: 20130911

REACTIONS (2)
  - Herpes zoster [Recovering/Resolving]
  - Haemorrhage intracranial [Recovering/Resolving]
